FAERS Safety Report 8511711-0 (Version None)
Quarter: 2012Q3

REPORT INFORMATION
  Report Type: 
  Country: None (occurrence: None)
  Receive Date: 20120710
  Receipt Date: 20120710
  Transmission Date: 20120928
  Serious: Yes (Life-Threatening, Hospitalization)
  Sender: FDA-Public Use
  Company Number: None

PATIENT
  Age: 37 Year
  Sex: Male
  Weight: 99.7913 kg

DRUGS (1)
  1. PRIALT [Suspect]
     Indication: BACK PAIN
     Dosage: IT
     Route: 038
     Dates: start: 20090815, end: 20100213

REACTIONS (9)
  - MEMORY IMPAIRMENT [None]
  - HALLUCINATION [None]
  - MENTAL STATUS CHANGES [None]
  - ANXIETY [None]
  - DEHYDRATION [None]
  - MENTAL IMPAIRMENT [None]
  - BRAIN INJURY [None]
  - PSYCHOTIC DISORDER [None]
  - PARANOIA [None]
